FAERS Safety Report 7652640-4 (Version None)
Quarter: 2011Q3

REPORT INFORMATION
  Report Type: 
  Country: None (occurrence: None)
  Receive Date: 20110728
  Receipt Date: 20110712
  Transmission Date: 20111222
  Serious: Yes (Hospitalization)
  Sender: FDA-Public Use
  Company Number: 2011MA008733

PATIENT
  Age: 29 Year
  Sex: Female

DRUGS (1)
  1. PROPYLTHIOURACIL [Suspect]
     Indication: BASEDOW'S DISEASE
     Dosage: 50 MG;Q8;PO
     Route: 048

REACTIONS (8)
  - LIVER TRANSPLANT [None]
  - CHOLESTASIS [None]
  - BILIARY TRACT DISORDER [None]
  - ACUTE HEPATIC FAILURE [None]
  - HEPATIC ENCEPHALOPATHY [None]
  - INFLAMMATION [None]
  - HEPATIC NECROSIS [None]
  - HEPATIC HAEMORRHAGE [None]
